FAERS Safety Report 19983639 (Version 1)
Quarter: 2021Q4

REPORT INFORMATION
  Report Type: Spontaneous
  Country: US (occurrence: US)
  Receive Date: 20211021
  Receipt Date: 20211021
  Transmission Date: 20220303
  Serious: Yes (Other)
  Sender: FDA-Public Use
  Company Number: US-GLAXOSMITHKLINE-US2021GSK217047

PATIENT
  Sex: Male

DRUGS (4)
  1. ZANTAC [Suspect]
     Active Substance: RANITIDINE HYDROCHLORIDE
     Indication: Lung disorder
     Dosage: UNK UNK, QD
     Route: 065
     Dates: start: 198301, end: 201902
  2. ZANTAC [Suspect]
     Active Substance: RANITIDINE HYDROCHLORIDE
     Indication: Lung disorder
     Dosage: UNK UNK, QD
     Route: 065
     Dates: start: 198301, end: 201902
  3. ZANTAC [Suspect]
     Active Substance: RANITIDINE HYDROCHLORIDE
     Indication: Lung disorder
     Dosage: UNK UNK, QD
     Route: 065
     Dates: start: 198301, end: 201902
  4. RANITIDINE [Suspect]
     Active Substance: RANITIDINE
     Indication: Lung disorder
     Dosage: UNK UNK, QD
     Route: 065
     Dates: start: 198301, end: 201902

REACTIONS (1)
  - Colorectal cancer [Unknown]
